FAERS Safety Report 5073458-5 (Version None)
Quarter: 2006Q3

REPORT INFORMATION
  Report Type: 
  Country: None (occurrence: None)
  Receive Date: 20060808
  Receipt Date: 20060727
  Transmission Date: 20061208
  Serious: Yes (Hospitalization)
  Sender: FDA-Public Use
  Company Number: PHBS2006FR11270

PATIENT
  Age: 38 Year
  Sex: Female

DRUGS (5)
  1. CYCLOSPORINE [Suspect]
     Indication: LUNG TRANSPLANT
     Dates: start: 20031201
  2. AZATHIOPRINE [Suspect]
     Indication: LUNG TRANSPLANT
     Dosage: 2 MG/KG/D
     Dates: start: 20031201
  3. CORTICOSTEROIDS [Concomitant]
     Indication: LUNG TRANSPLANT
     Dosage: 0.5 MG/KG/D
  4. ATGAM [Concomitant]
     Indication: LUNG TRANSPLANT
  5. TACROLIMUS [Suspect]
     Indication: LUNG TRANSPLANT

REACTIONS (19)
  - ACUTE RESPIRATORY FAILURE [None]
  - ANURIA [None]
  - BLOOD LACTATE DEHYDROGENASE INCREASED [None]
  - CHEST X-RAY ABNORMAL [None]
  - DIALYSIS [None]
  - FLUID OVERLOAD [None]
  - HAEMOLYTIC ANAEMIA [None]
  - HAEMOPTYSIS [None]
  - HAPTOGLOBIN DECREASED [None]
  - INTESTINAL FUNCTIONAL DISORDER [None]
  - OEDEMA [None]
  - PULMONARY ALVEOLAR HAEMORRHAGE [None]
  - RENAL FAILURE [None]
  - RENAL TUBULAR NECROSIS [None]
  - RESPIRATORY GAS EXCHANGE DISORDER [None]
  - RETICULOCYTOSIS [None]
  - THROMBOCYTOPENIA [None]
  - THROMBOTIC MICROANGIOPATHY [None]
  - VON WILLEBRAND'S DISEASE [None]
